FAERS Safety Report 4452355-X (Version None)
Quarter: 2004Q3

REPORT INFORMATION
  Report Type: 
  Country: None (occurrence: None)
  Receive Date: 20040916
  Receipt Date: 20040902
  Transmission Date: 20050211
  Serious: Yes (Disabling)
  Sender: FDA-Public Use
  Company Number: 2004SE04474

PATIENT
  Age: 41 Year
  Sex: Female
  Weight: 57 kg

DRUGS (1)
  1. ZOLADEX [Suspect]
     Indication: ENDOMETRIAL DISORDER
     Dates: start: 19941101, end: 19941101

REACTIONS (2)
  - ANXIETY [None]
  - DEPRESSION [None]
